FAERS Safety Report 11857941 (Version 1)
Quarter: 2015Q4

REPORT INFORMATION
  Report Type: Spontaneous
  Country: US (occurrence: US)
  Receive Date: 20151222
  Receipt Date: 20151222
  Transmission Date: 20160305
  Serious: Yes (Other)
  Sender: FDA-Public Use
  Company Number: US-FRI-1000081766

PATIENT
  Sex: Female

DRUGS (2)
  1. BYSTOLIC [Suspect]
     Active Substance: NEBIVOLOL HYDROCHLORIDE
  2. LISINOPRIL. [Suspect]
     Active Substance: LISINOPRIL

REACTIONS (2)
  - Ventricular tachycardia [Unknown]
  - Hypertension [Unknown]
